FAERS Safety Report 15285832 (Version 1)
Quarter: 2018Q3

REPORT INFORMATION
  Report Type: Spontaneous
  Country: US (occurrence: US)
  Receive Date: 20180802
  Receipt Date: 20180802
  Transmission Date: 20181010
  Serious: No
  Sender: FDA-Public Use
  Company Number: None

PATIENT
  Age: 32 Year
  Sex: Female
  Weight: 74.84 kg

DRUGS (1)
  1. MIRENA [Suspect]
     Active Substance: LEVONORGESTREL

REACTIONS (9)
  - Loss of libido [None]
  - Asthenia [None]
  - Weight increased [None]
  - Feeling abnormal [None]
  - Pain [None]
  - Abdominal pain [None]
  - Bacterial vaginosis [None]
  - Vulvovaginal pain [None]
  - Fatigue [None]

NARRATIVE: CASE EVENT DATE: 20150924
